FAERS Safety Report 4864240-X (Version None)
Quarter: 2005Q4

REPORT INFORMATION
  Report Type: 
  Country: None (occurrence: None)
  Receive Date: 20051221
  Receipt Date: 20051221
  Transmission Date: 20060501
  Serious: Yes (Hospitalization)
  Sender: FDA-Public Use
  Company Number: None

PATIENT
  Age: 74 Year
  Sex: Male

DRUGS (17)
  1. QUADRAMET [Suspect]
     Indication: BONE CANCER METASTATIC
     Dosage: 72.96 MCI GIVEN ONCE
     Dates: start: 20050915
  2. QUADRAMET [Suspect]
     Indication: BONE PAIN
     Dosage: 72.96 MCI GIVEN ONCE
     Dates: start: 20050915
  3. CORDARONE [Concomitant]
  4. ZETIA [Concomitant]
  5. ASPIRIN [Concomitant]
  6. ZOCOR [Concomitant]
  7. FLOMAX [Concomitant]
  8. COLACE [Concomitant]
  9. NEURONTIN [Concomitant]
  10. ALDACTONE [Concomitant]
  11. WELLBUTRIN [Concomitant]
  12. DURAGESIC-100 [Concomitant]
  13. SYNTHROID [Concomitant]
  14. LORTAB [Concomitant]
  15. PREDNISONE 50MG TAB [Concomitant]
  16. LASIX [Concomitant]
  17. POTASSIUM CHLORIDE [Concomitant]

REACTIONS (4)
  - ANAESTHETIC COMPLICATION [None]
  - HYPERCAPNIA [None]
  - HYPERTENSION [None]
  - RESPIRATORY FAILURE [None]
